FAERS Safety Report 6996301-3 (Version None)
Quarter: 2010Q3

REPORT INFORMATION
  Report Type: 
  Country: None (occurrence: None)
  Receive Date: 20100918
  Receipt Date: 20090120
  Transmission Date: 20110219
  Serious: No
  Sender: FDA-Public Use
  Company Number: US-WYE-H07792909

PATIENT
  Sex: Female

DRUGS (5)
  1. EFFEXOR XR [Suspect]
     Indication: ANXIETY
     Dosage: UNKNOWN
     Route: 048
     Dates: start: 20070101, end: 20090115
  2. EFFEXOR XR [Suspect]
     Indication: DEPRESSION
  3. ADDERALL 10 [Concomitant]
     Indication: ATTENTION DEFICIT/HYPERACTIVITY DISORDER
  4. EFFEXOR [Suspect]
     Route: 048
     Dates: start: 20070116, end: 20090122
  5. EFFEXOR [Suspect]
     Dosage: ^EVERY THREE DAYS SHE WOULD DISCONTINUE A 37.5 MG DOSE
     Route: 048
     Dates: start: 20090123

REACTIONS (7)
  - AGGRESSION [None]
  - DISORIENTATION [None]
  - DRUG WITHDRAWAL SYNDROME [None]
  - FEAR [None]
  - FEELING JITTERY [None]
  - HYPERACUSIS [None]
  - NERVOUSNESS [None]
